FAERS Safety Report 16296227 (Version 4)
Quarter: 2019Q4

REPORT INFORMATION
  Report Type: Spontaneous
  Country: US (occurrence: US)
  Receive Date: 20190510
  Receipt Date: 20191216
  Transmission Date: 20200122
  Serious: No
  Sender: FDA-Public Use
  Company Number: PHEH2019US019682

PATIENT
  Sex: Female

DRUGS (1)
  1. GLATOPA [Suspect]
     Active Substance: GLATIRAMER ACETATE
     Indication: PRODUCT USED FOR UNKNOWN INDICATION
     Dosage: 40 MG, TIW
     Route: 065

REACTIONS (10)
  - Accidental exposure to product [Unknown]
  - Injection site injury [Unknown]
  - Fatigue [Unknown]
  - Condition aggravated [Unknown]
  - Needle issue [Unknown]
  - Abdominal pain upper [Unknown]
  - Nausea [Unknown]
  - Asthenia [Unknown]
  - Injection site pain [Unknown]
  - Underdose [Unknown]
